FAERS Safety Report 7337591-7 (Version None)
Quarter: 2011Q1

REPORT INFORMATION
  Report Type: 
  Country: None (occurrence: None)
  Receive Date: 20110308
  Receipt Date: 20110223
  Transmission Date: 20110831
  Serious: Yes (Death, Hospitalization)
  Sender: FDA-Public Use
  Company Number: US-CELGENEUS-163-21880-10100602

PATIENT
  Sex: Male

DRUGS (7)
  1. METOPROLOL [Concomitant]
     Route: 065
  2. REVLIMID [Suspect]
     Indication: MULTIPLE MYELOMA
     Dosage: 10 MILLIGRAM
     Route: 048
     Dates: start: 20100910, end: 20100918
  3. WARFARIN [Concomitant]
     Route: 065
  4. FLOMAX [Concomitant]
     Route: 065
  5. AMIODARONE [Concomitant]
     Route: 065
  6. NEURONTIN [Concomitant]
     Route: 065
  7. SIMVASTATIN [Concomitant]
     Route: 065

REACTIONS (4)
  - PYREXIA [None]
  - RESPIRATORY FAILURE [None]
  - HYPOXIA [None]
  - ASTHENIA [None]
